FAERS Safety Report 10057581 (Version 2)
Quarter: 2014Q2

REPORT INFORMATION
  Report Type: Spontaneous
  Country: FR (occurrence: FR)
  Receive Date: 20140404
  Receipt Date: 20140411
  Transmission Date: 20141212
  Serious: Yes (Other)
  Sender: FDA-Public Use
  Company Number: PHHY2014FR039538

PATIENT
  Age: 72 Year
  Sex: Female
  Weight: 165 kg

DRUGS (5)
  1. ESIDREX [Suspect]
     Indication: HYPERTENSION
     Dosage: 25 MG, QD
     Route: 048
     Dates: start: 2000
  2. ESIDREX [Suspect]
     Dosage: 2 DF INSTEAD OF 1 DF
     Dates: start: 20140329
  3. ESIDREX [Suspect]
     Dosage: 1 DF, (25 MG) QD
     Route: 048
  4. ATACAND [Concomitant]
     Indication: HYPERTENSION
     Dosage: UNK UKN, UNK
     Route: 048
  5. CANDESARTAN [Concomitant]
     Dosage: 8 MG, UNK

REACTIONS (5)
  - Fracture [Unknown]
  - Fall [Unknown]
  - Polyuria [Recovered/Resolved]
  - Fatigue [Unknown]
  - Incorrect dose administered [Unknown]
